FAERS Safety Report 15357766 (Version 1)
Quarter: 2018Q3

REPORT INFORMATION
  Report Type: Spontaneous
  Country: NO (occurrence: NO)
  Receive Date: 20180906
  Receipt Date: 20180906
  Transmission Date: 20181010
  Serious: Yes (Hospitalization, Disabling)
  Sender: FDA-Public Use
  Company Number: NO-SAKK-2018SA237062AA

PATIENT
  Age: 50 Year
  Sex: Male

DRUGS (8)
  1. ALBYL?E [Concomitant]
     Active Substance: ASPIRIN\MAGNESIUM OXIDE
     Dosage: 75 MG, QD
     Route: 048
     Dates: start: 20151202
  2. KLEXANE [Suspect]
     Active Substance: ENOXAPARIN
     Indication: THROMBOSIS PROPHYLAXIS
     Dosage: 40 MG
     Route: 042
     Dates: start: 20151130, end: 20160324
  3. ALBYL?E [Concomitant]
     Active Substance: ASPIRIN\MAGNESIUM OXIDE
     Dosage: 75 MG, QD
     Route: 048
     Dates: start: 20151128, end: 20151128
  4. FRAGMIN [Concomitant]
     Active Substance: DALTEPARIN SODIUM
     Indication: MUSCULAR WEAKNESS
     Dosage: 5000 IU
     Route: 042
     Dates: start: 20151130
  5. FRAGMIN [Concomitant]
     Active Substance: DALTEPARIN SODIUM
     Indication: THROMBOSIS PROPHYLAXIS
  6. MAREVAN [Concomitant]
     Active Substance: WARFARIN SODIUM
     Route: 065
  7. ALBYL?E [Concomitant]
     Active Substance: ASPIRIN\MAGNESIUM OXIDE
     Indication: CARDIAC DISCOMFORT
     Dosage: 75 MG, QD
     Route: 048
     Dates: start: 2003, end: 20151120
  8. ALBYL?E [Concomitant]
     Active Substance: ASPIRIN\MAGNESIUM OXIDE
     Dosage: 75 MG, QD
     Route: 048
     Dates: start: 20151130, end: 20151130

REACTIONS (7)
  - Disease progression [Not Recovered/Not Resolved]
  - Myelitis transverse [Not Recovered/Not Resolved]
  - Asthenia [Recovering/Resolving]
  - Impaired work ability [Not Recovered/Not Resolved]
  - Neuralgia [Not Recovered/Not Resolved]
  - Paresis [Recovering/Resolving]
  - Pain in extremity [Not Recovered/Not Resolved]

NARRATIVE: CASE EVENT DATE: 20151130
